FAERS Safety Report 23287754 (Version 1)
Quarter: 2023Q4

REPORT INFORMATION
  Report Type: Spontaneous
  Country: FR (occurrence: FR)
  Receive Date: 20231212
  Receipt Date: 20231212
  Transmission Date: 20240110
  Serious: Yes (Death)
  Sender: FDA-Public Use
  Company Number: FR-JNJFOC-20231217691

PATIENT
  Sex: Male
  Weight: 75 kg

DRUGS (3)
  1. TECLISTAMAB [Suspect]
     Active Substance: TECLISTAMAB
     Indication: Plasma cell myeloma
     Route: 058
     Dates: start: 20231116
  2. TECLISTAMAB [Suspect]
     Active Substance: TECLISTAMAB
     Route: 058
  3. TECLISTAMAB [Suspect]
     Active Substance: TECLISTAMAB
     Route: 058
     Dates: end: 20231202

REACTIONS (1)
  - Cardiac arrest [Fatal]
